FAERS Safety Report 22164411 (Version 3)
Quarter: 2023Q2

REPORT INFORMATION
  Report Type: Report from Study
  Country: CO (occurrence: CO)
  Receive Date: 20230403
  Receipt Date: 20230518
  Transmission Date: 20230722
  Serious: Yes (Disabling)
  Sender: FDA-Public Use
  Company Number: CO-ABBVIE-4709210

PATIENT
  Sex: Female
  Weight: 95 kg

DRUGS (4)
  1. HUMIRA [Suspect]
     Active Substance: ADALIMUMAB
     Indication: Ankylosing spondylitis
     Route: 058
     Dates: end: 20221007
  2. HYRIMOZ [Suspect]
     Active Substance: ADALIMUMAB-ADAZ
     Indication: Product used for unknown indication
     Dosage: (ADALIMUMAB BIOSIMILAR)
     Route: 065
     Dates: start: 202301, end: 202301
  3. ACETAMINOPHEN\TRAMADOL HYDROCHLORIDE [Suspect]
     Active Substance: ACETAMINOPHEN\TRAMADOL HYDROCHLORIDE
     Indication: Ankylosing spondylitis
     Route: 048
     Dates: start: 202303
  4. BOTULINUM TOXIN NOS [Suspect]
     Active Substance: BOTULINUM TOXIN NOS
     Indication: Migraine
     Dosage: BOTULINUM TOXIN TYPE A UNK
     Dates: start: 202305

REACTIONS (14)
  - Ankylosing spondylitis [Recovering/Resolving]
  - Somnolence [Recovered/Resolved]
  - Irritable bowel syndrome [Recovering/Resolving]
  - Muscle rigidity [Recovering/Resolving]
  - Gastrooesophageal reflux disease [Recovering/Resolving]
  - Gastritis [Recovering/Resolving]
  - Nausea [Recovering/Resolving]
  - Arthritis [Recovering/Resolving]
  - Urinary incontinence [Recovered/Resolved]
  - Inflammation [Recovering/Resolving]
  - Abdominal discomfort [Recovering/Resolving]
  - Anxiety [Recovering/Resolving]
  - Hypokinesia [Recovering/Resolving]
  - Migraine [Recovered/Resolved]

NARRATIVE: CASE EVENT DATE: 20220101
